FAERS Safety Report 20624492 (Version 9)
Quarter: 2023Q4

REPORT INFORMATION
  Report Type: Other
  Country: CA (occurrence: None)
  Receive Date: 20220322
  Receipt Date: 20231212
  Transmission Date: 20240110
  Serious: No
  Sender: FDA-Public Use
  Company Number: CA-ROCHE-3054464

PATIENT
  Age: 47 Year
  Sex: Female

DRUGS (2)
  1. OCREVUS [Suspect]
     Active Substance: OCRELIZUMAB
     Indication: Multiple sclerosis relapse
     Dosage: THEN 600 MG EVERY 6 MONTH
     Route: 042
     Dates: start: 20210810
  2. BOTOX [Concomitant]
     Active Substance: ONABOTULINUMTOXINA

REACTIONS (5)
  - Bacterial test positive [Unknown]
  - Cystitis [Not Recovered/Not Resolved]
  - Urinary tract infection [Not Recovered/Not Resolved]
  - Depression [Not Recovered/Not Resolved]
  - Urinary tract infection [Not Recovered/Not Resolved]

NARRATIVE: CASE EVENT DATE: 20210824
